FAERS Safety Report 23664744 (Version 2)
Quarter: 2025Q1

REPORT INFORMATION
  Report Type: Spontaneous
  Country: GR (occurrence: GR)
  Receive Date: 20240322
  Receipt Date: 20250123
  Transmission Date: 20250408
  Serious: Yes (Other)
  Sender: PFIZER
  Company Number: GR-PFIZER INC-PV202400039249

PATIENT
  Age: 60 Year
  Sex: Male

DRUGS (2)
  1. INLYTA [Suspect]
     Active Substance: AXITINIB
     Indication: Metastatic renal cell carcinoma
     Dosage: 5 MG, 2X/DAY
  2. PEMBROLIZUMAB [Concomitant]
     Active Substance: PEMBROLIZUMAB
     Indication: Metastatic renal cell carcinoma

REACTIONS (2)
  - Rash [Recovered/Resolved]
  - Hepatotoxicity [Recovered/Resolved]
